FAERS Safety Report 24077899 (Version 1)
Quarter: 2024Q3

REPORT INFORMATION
  Report Type: Spontaneous
  Country: GB (occurrence: GB)
  Receive Date: 20240711
  Receipt Date: 20240711
  Transmission Date: 20241017
  Serious: Yes (Hospitalization, Other)
  Sender: JUBILANT
  Company Number: None

PATIENT
  Age: 75 Year

DRUGS (31)
  1. OLANZAPINE [Suspect]
     Active Substance: OLANZAPINE
     Indication: Product used for unknown indication
     Dosage: UNK, UNK
     Route: 065
  2. VENLAFAXINE [Suspect]
     Active Substance: VENLAFAXINE HYDROCHLORIDE
     Indication: Product used for unknown indication
     Dosage: 75 MG TABLETS ONE TO BE TAKEN IN THE MORNING AND TWO TO BE TAKENAT NIGHT
  3. VENLAFAXINE [Suspect]
     Active Substance: VENLAFAXINE HYDROCHLORIDE
     Dosage: 150 MG, ONCE PER DAY
  4. SENNA LEAF [Concomitant]
     Active Substance: SENNA LEAF
     Indication: Product used for unknown indication
     Dosage: 15 MG, ONCE PER DAY (SENNA 7.5 MG TABLETS TWO TO BE TAKEN AT NIGHT)
  5. MINERAL OIL [Concomitant]
     Active Substance: MINERAL OIL
     Indication: Product used for unknown indication
     Dosage: USE OFTEN AS POSSIBLE TO MOISTURISE
     Route: 065
  6. MICRALAX MACROGOL [Concomitant]
     Indication: Product used for unknown indication
     Dosage: 1 DOSAGE FORM, ONCE PER DAY (ADMINISTER THE CONTENTS OFONE MICRO-ENEMA RECTALLY AS DIRECTED DAILY)
     Route: 054
  7. CALCIUM CARBONATE\SODIUM ALGINATE\SODIUM BICARBONATE [Concomitant]
     Active Substance: CALCIUM CARBONATE\SODIUM ALGINATE\SODIUM BICARBONATE
     Indication: Product used for unknown indication
     Dosage: 10-20 ML TO BE TAKEN AFTER MEALS AND AT BEDTIME WHENREQUIRED
  8. ALBUTEROL SULFATE [Concomitant]
     Active Substance: ALBUTEROL SULFATE
     Indication: Product used for unknown indication
     Dosage: ONE OR TWO PUFFS TO BE INHALEDUP TO FOUR TIMES A DAY VIA SPACER DEVICE
  9. HYDROMOL [EMULSIFYING WAX;PARAFFIN SOFT;PARAFFIN, LIQUID] [Concomitant]
     Indication: Product used for unknown indication
     Dosage: 1 DOSAGE FORM, 2 TIMES PER DAY (EVERY 12 HOURS AT 8 AM AND 8 PM FOR 28 DAYS AS DIRECTED BY HOSPITAL)
  10. Hypodermic insulin needles for pre-filled / reusable pen injectors scr [Concomitant]
     Dosage: AS DIRECTED
  11. MORPHINE [Concomitant]
     Active Substance: MORPHINE
     Indication: Product used for unknown indication
     Dosage: 20 MG, EVERY OTHER DAY
  12. DERMOL [Concomitant]
     Active Substance: BENZALKONIUM CHLORIDE\CHLORHEXIDINE HYDROCHLORIDE\ISOPROPYL MYRISTATE\PARAFFIN
     Indication: Product used for unknown indication
     Dosage: APPLY TWICE A DAY MORNING AND NIGHT WHEN REQUIRED AND USEAS A SOAP SUBSTITUTE
  13. EDOXABAN [Concomitant]
     Active Substance: EDOXABAN
     Indication: Product used for unknown indication
     Dosage: 1 DOSAGE FORM, ONCE PER DAY (MORNING)
     Route: 065
  14. FAMOTIDINE [Concomitant]
     Active Substance: FAMOTIDINE
     Indication: Product used for unknown indication
     Dosage: 1 DOSAGE FORM, ONCE PER DAY (AT NIGHT)
  15. CALCIUM\CHOLECALCIFEROL [Concomitant]
     Active Substance: CALCIUM\CHOLECALCIFEROL
     Indication: Product used for unknown indication
     Dosage: 1 DOSAGE FORM, EVERY OTHER DAY
  16. FLUTICASONE PROPIONATE [Concomitant]
     Active Substance: FLUTICASONE PROPIONATE
     Indication: Product used for unknown indication
     Dosage: 2 DOSAGE FORM, EVERY OTHER DAY (ONE SPRAY TO BE USED INEACH NOSTRIL ONCE A DAY)
     Route: 045
  17. FreeStyle Libre 2 Sensor [Concomitant]
     Indication: Product used for unknown indication
     Dosage: UNK, UNK
     Route: 065
  18. NOVORAPID [Concomitant]
     Active Substance: INSULIN ASPART
     Indication: Product used for unknown indication
     Dosage: ASD BYDIABETIC SPECIALIST NURSE SC 10,8,6 WITH MEALS
     Route: 058
  19. PROMETHAZINE HYDROCHLORIDE [Concomitant]
     Active Substance: PROMETHAZINE HYDROCHLORIDE
     Indication: Product used for unknown indication
     Dosage: 25 MG TABLETS 1 OR 2 TO BE TAKEN AT NIGHT
  20. POLYETHYLENE GLYCOLS [Concomitant]
     Active Substance: POLYETHYLENE GLYCOLS
     Indication: Product used for unknown indication
     Dosage: 1 DOSAGE FORM, EVERY OTHER DAY (DISSOLVE CONTENTS OF ONESACHET IN HALF A GLASS ( 125 ML) OF WATER AN
  21. PREGABALIN [Concomitant]
     Active Substance: PREGABALIN
     Indication: Product used for unknown indication
     Dosage: 1 DOSAGE FORM, 3 TIMES PER DAY
  22. NITROGLYCERIN [Concomitant]
     Active Substance: NITROGLYCERIN
     Indication: Product used for unknown indication
     Dosage: 400 MCG (SPRAY ONE OR TWODOSES UNDER TONGUE AND THEN CLOSE MOUTH AS DIRECTED)
  23. MONTELUKAST [Concomitant]
     Active Substance: MONTELUKAST SODIUM
     Indication: Product used for unknown indication
     Dosage: 1 DOSAGE FORM, ONCE PER DAY (NIGHT)
  24. CETIRIZINE [Concomitant]
     Active Substance: CETIRIZINE HYDROCHLORIDE
     Indication: Product used for unknown indication
     Dosage: 1 DOSAGE FORM, ONCE PER DAY
     Route: 065
  25. ESTRIOL [Concomitant]
     Active Substance: ESTRIOL
     Indication: Product used for unknown indication
     Dosage: TWICE WEEKLY FOR UP TO 3 MTHS
     Route: 065
  26. NYSTATIN [Concomitant]
     Active Substance: NYSTATIN
     Indication: Product used for unknown indication
     Dosage: 1 ML, 4 TIMES PER DAY (1 ML TO BE DROPPED INTO THE MOUTH FOURTIMES A DAY)
  27. TRESIBA [Concomitant]
     Active Substance: INSULIN DEGLUDEC
     Indication: Product used for unknown indication
     Dosage: ACCORDING TO REQUIREMENTS SC 16 UNIT EVENING X OP N
     Route: 058
  28. MOMETASONE [Concomitant]
     Active Substance: MOMETASONE
     Indication: Product used for unknown indication
     Dosage: 1 DOSAGE FORM, ONCE PER DAY (APPLY THINLY EVERY MORNING)
  29. DOCUSATE [Concomitant]
     Active Substance: DOCUSATE
     Indication: Product used for unknown indication
     Dosage: 100 MG, EVERY OTHER DAY
  30. BECLOMETHASONE DIPROPIONATE\FORMOTEROL FUMARATE\GLYCOPYRROLATE [Concomitant]
     Active Substance: BECLOMETHASONE DIPROPIONATE\FORMOTEROL FUMARATE\GLYCOPYRROLATE
     Indication: Product used for unknown indication
     Dosage: 2 DOSAGE FORM, EVERY OTHER DAY (TWO PUFFS TO BE INHALED TWICE A DAYX 92 DOSES VIA SPACER)
  31. ACETAMINOPHEN [Concomitant]
     Active Substance: ACETAMINOPHEN
     Indication: Product used for unknown indication
     Dosage: ONE OR TWO TO BE TAKEN FOUR TIMES DAILY ASREQUIRED

REACTIONS (1)
  - Hypertonia [Unknown]
